FAERS Safety Report 19247383 (Version 1)
Quarter: 2021Q2

REPORT INFORMATION
  Report Type: Spontaneous
  Country: US (occurrence: US)
  Receive Date: 20210512
  Receipt Date: 20210512
  Transmission Date: 20210717
  Serious: No
  Sender: FDA-Public Use
  Company Number: US-JNJFOC-20210503658

PATIENT

DRUGS (3)
  1. PEPCID AC [Suspect]
     Active Substance: FAMOTIDINE
     Indication: MEMORY IMPAIRMENT
  2. PEPCID AC [Suspect]
     Active Substance: FAMOTIDINE
     Indication: FATIGUE
  3. PEPCID AC [Suspect]
     Active Substance: FAMOTIDINE
     Indication: NEUROLOGICAL SYMPTOM
     Route: 065

REACTIONS (2)
  - Product use in unapproved indication [Unknown]
  - Therapeutic response unexpected [Unknown]
